FAERS Safety Report 15551360 (Version 13)
Quarter: 2023Q4

REPORT INFORMATION
  Report Type: Other
  Country: CA (occurrence: CA)
  Receive Date: 20181025
  Receipt Date: 20231215
  Transmission Date: 20240110
  Serious: Yes (Hospitalization, Other)
  Sender: FDA-Public Use
  Company Number: CA-GLENMARK PHARMACEUTICALS-2018GMK037884

PATIENT

DRUGS (310)
  1. GABAPENTIN [Suspect]
     Active Substance: GABAPENTIN
     Indication: Schizophrenia
     Dosage: 1800 MILLIGRAM, UNK (CAPSULE)
     Route: 065
  2. GABAPENTIN [Suspect]
     Active Substance: GABAPENTIN
     Indication: Affective disorder
     Dosage: 600 MILLIGRAM, OD (CAPSULE)
     Route: 065
  3. GABAPENTIN [Suspect]
     Active Substance: GABAPENTIN
     Dosage: UNK (CAPSULE)
     Route: 065
  4. GABAPENTIN [Suspect]
     Active Substance: GABAPENTIN
     Dosage: 1800 MILLIGRAM, UNK
     Route: 065
  5. GABAPENTIN [Suspect]
     Active Substance: GABAPENTIN
     Dosage: 600 MILLIGRAM, UNK
     Route: 065
  6. GABAPENTIN [Suspect]
     Active Substance: GABAPENTIN
     Dosage: UNK
     Route: 065
  7. GABAPENTIN [Suspect]
     Active Substance: GABAPENTIN
     Dosage: UNK
     Route: 065
  8. GABAPENTIN [Suspect]
     Active Substance: GABAPENTIN
     Dosage: 600 MILLIGRAM, 1 EVERY 1 DAYS (CAPSULE)
     Route: 065
  9. GABAPENTIN [Suspect]
     Active Substance: GABAPENTIN
     Dosage: UNK (CAPSULE)
     Route: 065
  10. GABAPENTIN [Suspect]
     Active Substance: GABAPENTIN
     Dosage: UNK (CAPSULE)
     Route: 065
  11. GABAPENTIN [Suspect]
     Active Substance: GABAPENTIN
     Dosage: UNK (CAPSULE)
     Route: 065
  12. GABAPENTIN [Suspect]
     Active Substance: GABAPENTIN
     Dosage: UNK (CAPSULE)
     Route: 065
  13. GABAPENTIN [Suspect]
     Active Substance: GABAPENTIN
     Dosage: UNK (CAPSULE)
     Route: 065
  14. GABAPENTIN [Suspect]
     Active Substance: GABAPENTIN
     Dosage: UNK (CAPSULE)
     Route: 065
  15. GABAPENTIN [Suspect]
     Active Substance: GABAPENTIN
     Dosage: UNK (CAPSULE)
     Route: 065
  16. GABAPENTIN [Suspect]
     Active Substance: GABAPENTIN
     Dosage: 600 MILLIGRAM
     Route: 065
  17. ABILIFY [Suspect]
     Active Substance: ARIPIPRAZOLE
     Indication: Schizophrenia
     Dosage: 30 MILLIGRAM, UNK
     Route: 065
  18. ABILIFY [Suspect]
     Active Substance: ARIPIPRAZOLE
     Dosage: UNK
     Route: 065
  19. AMISULPRIDE [Suspect]
     Active Substance: AMISULPRIDE
     Indication: Schizophrenia
     Dosage: 1200 MG, UNK
     Route: 065
  20. AMISULPRIDE [Suspect]
     Active Substance: AMISULPRIDE
     Indication: Psychotherapy
     Dosage: UNK
     Route: 065
  21. AMISULPRIDE [Suspect]
     Active Substance: AMISULPRIDE
     Dosage: 1 DF, OD
     Route: 065
  22. AMISULPRIDE [Suspect]
     Active Substance: AMISULPRIDE
     Dosage: 30 MG, UNK
     Route: 065
  23. AMISULPRIDE [Suspect]
     Active Substance: AMISULPRIDE
     Dosage: UNK
     Route: 065
  24. AMISULPRIDE [Suspect]
     Active Substance: AMISULPRIDE
     Dosage: UNK
     Route: 065
  25. AMISULPRIDE [Suspect]
     Active Substance: AMISULPRIDE
     Dosage: UNK
     Route: 065
  26. AMISULPRIDE [Suspect]
     Active Substance: AMISULPRIDE
     Dosage: 30 MG, UNK
     Route: 065
  27. ARIPIPRAZOLE [Suspect]
     Active Substance: ARIPIPRAZOLE
     Indication: Schizophrenia
     Dosage: 30 MG, UNK
     Route: 065
  28. ARIPIPRAZOLE [Suspect]
     Active Substance: ARIPIPRAZOLE
     Indication: Psychotherapy
     Dosage: UNK
     Route: 065
  29. ARIPIPRAZOLE [Suspect]
     Active Substance: ARIPIPRAZOLE
     Dosage: UNK
     Route: 065
  30. ARIPIPRAZOLE [Suspect]
     Active Substance: ARIPIPRAZOLE
     Dosage: UNK
     Route: 065
  31. ARIPIPRAZOLE [Suspect]
     Active Substance: ARIPIPRAZOLE
     Dosage: UNK
     Route: 065
  32. ARIPIPRAZOLE [Suspect]
     Active Substance: ARIPIPRAZOLE
     Dosage: 30 MG, 1 EVERY 1 DAYS
     Route: 065
  33. ARIPIPRAZOLE [Suspect]
     Active Substance: ARIPIPRAZOLE
     Dosage: 30 MG, 1 EVERY 1 DAYS
     Route: 065
  34. ARIPIPRAZOLE [Suspect]
     Active Substance: ARIPIPRAZOLE
     Indication: Schizophrenia
     Dosage: 30 MG, OD
     Route: 065
  35. ARIPIPRAZOLE [Suspect]
     Active Substance: ARIPIPRAZOLE
     Indication: Psychotherapy
     Dosage: UNK
     Route: 065
  36. ARIPIPRAZOLE [Suspect]
     Active Substance: ARIPIPRAZOLE
     Dosage: 30 MILLIGRAM
     Route: 065
  37. SAPHRIS [Suspect]
     Active Substance: ASENAPINE MALEATE
     Indication: Schizophrenia
     Dosage: UNK
     Route: 065
  38. SAPHRIS [Suspect]
     Active Substance: ASENAPINE MALEATE
     Indication: Psychotic disorder
     Dosage: 600 MG, UNK
     Route: 065
  39. SAPHRIS [Suspect]
     Active Substance: ASENAPINE MALEATE
     Dosage: 100 MG, UNK
     Route: 065
  40. SAPHRIS [Suspect]
     Active Substance: ASENAPINE MALEATE
     Dosage: 600 MG, UNK
     Route: 065
  41. SAPHRIS [Suspect]
     Active Substance: ASENAPINE MALEATE
     Dosage: UNK
     Route: 065
  42. SAPHRIS [Suspect]
     Active Substance: ASENAPINE MALEATE
     Dosage: 600 MILLIGRAM
     Route: 048
  43. ASENAPINE MALEATE [Suspect]
     Active Substance: ASENAPINE MALEATE
     Indication: Schizophrenia
     Dosage: UNK
     Route: 065
  44. ASENAPINE MALEATE [Suspect]
     Active Substance: ASENAPINE MALEATE
     Dosage: 100 MILLIGRAM
     Route: 065
  45. LOXAPINE [Suspect]
     Active Substance: LOXAPINE
     Indication: Schizophrenia
     Dosage: 50 MG, UNK
     Route: 065
  46. LOXAPINE [Suspect]
     Active Substance: LOXAPINE
     Dosage: 75 MG, UNK
     Route: 065
  47. LOXAPINE [Suspect]
     Active Substance: LOXAPINE
     Dosage: 200 MG, UNK
     Route: 065
  48. LOXAPINE SUCCINATE [Suspect]
     Active Substance: LOXAPINE SUCCINATE
     Indication: Schizophrenia
     Dosage: 75 MG, OD
     Route: 065
  49. LOXAPINE SUCCINATE [Suspect]
     Active Substance: LOXAPINE SUCCINATE
     Indication: Psychotic disorder
     Dosage: 50 MG, OD
     Route: 065
  50. LOXAPINE SUCCINATE [Suspect]
     Active Substance: LOXAPINE SUCCINATE
     Dosage: 200 MG, OD
     Route: 065
  51. LOXAPINE SUCCINATE [Suspect]
     Active Substance: LOXAPINE SUCCINATE
     Dosage: 50 MILLIGRAM
     Route: 065
  52. LOXAPINE SUCCINATE [Suspect]
     Active Substance: LOXAPINE SUCCINATE
     Dosage: UNK
     Route: 065
  53. LOXAPINE SUCCINATE [Suspect]
     Active Substance: LOXAPINE SUCCINATE
     Dosage: UNK
     Route: 065
  54. LOXAPINE SUCCINATE [Suspect]
     Active Substance: LOXAPINE SUCCINATE
     Dosage: UNK
     Route: 065
  55. LOXAPINE SUCCINATE [Suspect]
     Active Substance: LOXAPINE SUCCINATE
     Dosage: 200 MILLIGRAM, 1 EVERY 1 DAYS
     Route: 065
  56. LOXAPINE SUCCINATE [Suspect]
     Active Substance: LOXAPINE SUCCINATE
     Dosage: 50 MILLIGRAM, 1 EVERY 1 DAYS
     Route: 065
  57. LOXAPINE SUCCINATE [Suspect]
     Active Substance: LOXAPINE SUCCINATE
     Dosage: 75 MILLIGRAM, 1 EVERY 1 DAYS
     Route: 065
  58. LOXAPINE SUCCINATE [Suspect]
     Active Substance: LOXAPINE SUCCINATE
     Dosage: 75 MILLIGRAM
     Route: 065
  59. LOXAPINE SUCCINATE [Suspect]
     Active Substance: LOXAPINE SUCCINATE
     Dosage: 50 MILLIGRAM
     Route: 065
  60. LOXAPINE SUCCINATE [Suspect]
     Active Substance: LOXAPINE SUCCINATE
     Indication: Schizophrenia
     Dosage: 200 MILLIGRAM
     Route: 065
  61. LOXAPINE SUCCINATE [Suspect]
     Active Substance: LOXAPINE SUCCINATE
     Indication: Psychotic disorder
     Dosage: UNK
     Route: 065
  62. LOXAPINE SUCCINATE [Suspect]
     Active Substance: LOXAPINE SUCCINATE
     Dosage: 50 MILLIGRAM, OD
     Route: 065
  63. LOXAPINE SUCCINATE [Suspect]
     Active Substance: LOXAPINE SUCCINATE
     Dosage: 75 MILLIGRAM, OD
     Route: 065
  64. LOXAPINE SUCCINATE [Suspect]
     Active Substance: LOXAPINE SUCCINATE
     Dosage: 75 MILLIGRAM
     Route: 065
  65. LOXAPINE SUCCINATE [Suspect]
     Active Substance: LOXAPINE SUCCINATE
     Dosage: 50 MILLIGRAM
     Route: 065
  66. LOXAPINE SUCCINATE [Suspect]
     Active Substance: LOXAPINE SUCCINATE
     Dosage: 200 MILLIGRAM
     Route: 065
  67. LOXAPINE SUCCINATE [Suspect]
     Active Substance: LOXAPINE SUCCINATE
     Dosage: 50 MILLIGRAM
     Route: 065
  68. LOXAPINE SUCCINATE [Suspect]
     Active Substance: LOXAPINE SUCCINATE
     Dosage: 50 MILLIGRAM
     Route: 065
  69. CITALOPRAM [Suspect]
     Active Substance: CITALOPRAM HYDROBROMIDE
     Indication: Schizophrenia
     Dosage: 80 MG, UNK
     Route: 065
  70. CITALOPRAM [Suspect]
     Active Substance: CITALOPRAM HYDROBROMIDE
     Dosage: 250 MG, UNK
     Route: 065
  71. CITALOPRAM [Suspect]
     Active Substance: CITALOPRAM HYDROBROMIDE
     Dosage: UNK
     Route: 065
  72. CITALOPRAM [Suspect]
     Active Substance: CITALOPRAM HYDROBROMIDE
     Indication: Schizophrenia
     Dosage: 80 MG, UNK
     Route: 065
  73. CITALOPRAM [Suspect]
     Active Substance: CITALOPRAM HYDROBROMIDE
     Dosage: 250 MILLIGRAM
     Route: 065
  74. CITALOPRAM [Suspect]
     Active Substance: CITALOPRAM HYDROBROMIDE
     Dosage: UNK
     Route: 065
  75. CLOMIPRAMINE [Suspect]
     Active Substance: CLOMIPRAMINE
     Indication: Schizophrenia
     Dosage: 250 MG, UNK
     Route: 065
  76. CLOMIPRAMINE [Suspect]
     Active Substance: CLOMIPRAMINE
     Dosage: UNK
     Route: 065
  77. CLOMIPRAMINE [Suspect]
     Active Substance: CLOMIPRAMINE
     Dosage: 250 MG, UNK
     Route: 065
  78. CLOZAPINE [Suspect]
     Active Substance: CLOZAPINE
     Indication: Schizophrenia
     Dosage: 350 MG, UNK
     Route: 065
  79. CLOZAPINE [Suspect]
     Active Substance: CLOZAPINE
     Indication: Psychotic disorder
     Dosage: 350 MG, OD
     Route: 065
  80. CLOZAPINE [Suspect]
     Active Substance: CLOZAPINE
     Dosage: 3 MILLIGRAM, UNK
     Route: 065
  81. CLOZAPINE [Suspect]
     Active Substance: CLOZAPINE
     Dosage: 8 MILLIGRAM, UNK
     Route: 065
  82. CLOZAPINE [Suspect]
     Active Substance: CLOZAPINE
     Dosage: 4 MILLIGRAM, UNK
     Route: 065
  83. CLOZAPINE [Suspect]
     Active Substance: CLOZAPINE
     Dosage: 350 MILLIGRAM 1 EVERY 1 DAYS
     Route: 048
  84. CLOZAPINE [Suspect]
     Active Substance: CLOZAPINE
     Dosage: 350 MILLIGRAM 1 EVERY 1 DAYS
     Route: 048
  85. CLOZAPINE [Suspect]
     Active Substance: CLOZAPINE
     Dosage: 350 MG, 1 EVERY 1 DAYS
     Route: 048
  86. CLOZAPINE [Suspect]
     Active Substance: CLOZAPINE
     Dosage: 350 MG, 1 EVERY 1 DAYS
     Route: 048
  87. FLUOXETINE [Suspect]
     Active Substance: FLUOXETINE HYDROCHLORIDE
     Indication: Schizophrenia
     Dosage: 80 MG, UNK
     Route: 065
  88. FLUOXETINE [Suspect]
     Active Substance: FLUOXETINE HYDROCHLORIDE
     Dosage: UNK
     Route: 065
  89. FLUPENTIXOL [Suspect]
     Active Substance: FLUPENTIXOL
     Indication: Schizophrenia
     Dosage: 6 MG, OD
     Route: 065
  90. FLUPENTIXOL [Suspect]
     Active Substance: FLUPENTIXOL
     Indication: Psychotic disorder
     Dosage: UNK
     Route: 065
  91. FLUPENTIXOL [Suspect]
     Active Substance: FLUPENTIXOL
     Dosage: UNK
     Route: 065
  92. FLUPENTIXOL [Suspect]
     Active Substance: FLUPENTIXOL
     Dosage: 60 MILLIGRAM, OD
     Route: 065
  93. FLUPENTIXOL [Suspect]
     Active Substance: FLUPENTIXOL
     Dosage: 6 MILLIGRAM
     Route: 065
  94. FLUPENTIXOL [Suspect]
     Active Substance: FLUPENTIXOL
     Dosage: UNK
     Route: 065
  95. FLUPENTIXOL [Suspect]
     Active Substance: FLUPENTIXOL
     Dosage: UNK
     Route: 065
  96. FLUPENTIXOL [Suspect]
     Active Substance: FLUPENTIXOL
     Dosage: 60 MILLIGRAM
     Route: 065
  97. HALOPERIDOL [Suspect]
     Active Substance: HALOPERIDOL
     Indication: Schizophrenia
     Dosage: 5 MG, UNK
     Route: 065
  98. HALOPERIDOL [Suspect]
     Active Substance: HALOPERIDOL
     Indication: Psychotic disorder
     Dosage: 5 MG, OD
     Route: 065
  99. HALOPERIDOL [Suspect]
     Active Substance: HALOPERIDOL
     Dosage: 6 MG, UNK
     Route: 065
  100. HALOPERIDOL [Suspect]
     Active Substance: HALOPERIDOL
     Dosage: UNK
     Route: 065
  101. HALOPERIDOL [Suspect]
     Active Substance: HALOPERIDOL
     Dosage: UNK
     Route: 065
  102. HALOPERIDOL [Suspect]
     Active Substance: HALOPERIDOL
     Dosage: 5 MG, UNK
     Route: 065
  103. HALOPERIDOL [Suspect]
     Active Substance: HALOPERIDOL
     Dosage: 5 MG, 1 EVERY 1 DAYS
     Route: 065
  104. LITHIUM CARBONATE [Suspect]
     Active Substance: LITHIUM CARBONATE
     Indication: Schizophrenia
     Dosage: 1050 MG, UNK
     Route: 065
  105. LITHIUM CARBONATE [Suspect]
     Active Substance: LITHIUM CARBONATE
     Indication: Affective disorder
     Dosage: 1800 MG, UNK
     Route: 065
  106. LITHIUM CARBONATE [Suspect]
     Active Substance: LITHIUM CARBONATE
     Dosage: 2400 MILLIGRAM, OD
     Route: 065
  107. LITHIUM CARBONATE [Suspect]
     Active Substance: LITHIUM CARBONATE
     Dosage: 1800 MG, UNK
     Route: 065
  108. LITHIUM CARBONATE [Suspect]
     Active Substance: LITHIUM CARBONATE
     Dosage: UNK
     Route: 065
  109. LITHIUM CARBONATE [Suspect]
     Active Substance: LITHIUM CARBONATE
     Dosage: 1 DF, OD
     Route: 065
  110. LITHIUM CARBONATE [Suspect]
     Active Substance: LITHIUM CARBONATE
     Dosage: 1 DF, OD
     Route: 065
  111. LITHIUM CARBONATE [Suspect]
     Active Substance: LITHIUM CARBONATE
     Dosage: UNK
     Route: 065
  112. LITHIUM CARBONATE [Suspect]
     Active Substance: LITHIUM CARBONATE
     Dosage: UNK
     Route: 065
  113. LITHIUM CARBONATE [Suspect]
     Active Substance: LITHIUM CARBONATE
     Dosage: 2400 MILLIGRAM
     Route: 065
  114. LITHIUM CARBONATE [Suspect]
     Active Substance: LITHIUM CARBONATE
     Dosage: 2400 MILLIGRAM, 1 EVERY 1 DAYS
     Route: 065
  115. LITHIUM CARBONATE [Suspect]
     Active Substance: LITHIUM CARBONATE
     Dosage: 1050 MG, UNK
     Route: 065
  116. LITHIUM CARBONATE [Suspect]
     Active Substance: LITHIUM CARBONATE
     Dosage: 1800 MG, 1 EVERY 1 DAYS
     Route: 065
  117. LITHIUM CARBONATE [Suspect]
     Active Substance: LITHIUM CARBONATE
     Dosage: UNK
     Route: 065
  118. LITHIUM CARBONATE [Suspect]
     Active Substance: LITHIUM CARBONATE
     Dosage: UNK
     Route: 065
  119. LITHIUM CARBONATE [Suspect]
     Active Substance: LITHIUM CARBONATE
     Dosage: UNK
     Route: 065
  120. LITHIUM CARBONATE [Suspect]
     Active Substance: LITHIUM CARBONATE
     Dosage: 2400 MILLIGRAM
     Route: 065
  121. LITHIUM CARBONATE [Suspect]
     Active Substance: LITHIUM CARBONATE
     Dosage: 1800 MG, 1 EVERY 1 DAYS
     Route: 065
  122. LITHIUM CARBONATE [Suspect]
     Active Substance: LITHIUM CARBONATE
     Dosage: 2400 MILLIGRAM, 1 EVERY 1 DAYS
     Route: 065
  123. OLANZAPINE [Suspect]
     Active Substance: OLANZAPINE
     Indication: Schizophrenia
     Dosage: 15 MG, OD
     Route: 065
  124. OLANZAPINE [Suspect]
     Active Substance: OLANZAPINE
     Indication: Psychotic disorder
     Dosage: 40 MG, UNK
     Route: 065
  125. OLANZAPINE [Suspect]
     Active Substance: OLANZAPINE
     Dosage: 15 MG, OD
     Route: 065
  126. OLANZAPINE [Suspect]
     Active Substance: OLANZAPINE
     Dosage: 20 MG, OD
     Route: 065
  127. OLANZAPINE [Suspect]
     Active Substance: OLANZAPINE
     Dosage: 40 MG, OD
     Route: 065
  128. OLANZAPINE [Suspect]
     Active Substance: OLANZAPINE
     Dosage: 20 MG, UNK
     Route: 065
  129. OLANZAPINE [Suspect]
     Active Substance: OLANZAPINE
     Dosage: 20 MG, UNK
     Route: 065
  130. OLANZAPINE [Suspect]
     Active Substance: OLANZAPINE
     Dosage: 15 MILLIGRAM
     Route: 065
  131. OLANZAPINE [Suspect]
     Active Substance: OLANZAPINE
     Dosage: 15 MILLIGRAM
     Route: 065
  132. OLANZAPINE [Suspect]
     Active Substance: OLANZAPINE
     Dosage: 40 MILLIGRAM, OD 1 EVERY 1 DAYS
     Route: 065
  133. OLANZAPINE [Suspect]
     Active Substance: OLANZAPINE
     Dosage: 20 MILLIGRAM, 1 EVERY 1 DAYS
     Route: 065
  134. OLANZAPINE [Suspect]
     Active Substance: OLANZAPINE
     Dosage: 20 MILLIGRAM, 1 EVERY 1 DAYS
     Route: 065
  135. OLANZAPINE [Suspect]
     Active Substance: OLANZAPINE
     Dosage: 20 MILLIGRAM, 1 EVERY 1 DAYS
     Route: 065
  136. OLANZAPINE [Suspect]
     Active Substance: OLANZAPINE
     Dosage: 40 MILLIGRAM, OD 1 EVERY 1 DAYS
     Route: 065
  137. PERPHENAZINE [Suspect]
     Active Substance: PERPHENAZINE
     Indication: Schizophrenia
     Dosage: UNK
     Route: 065
  138. PERPHENAZINE [Suspect]
     Active Substance: PERPHENAZINE
     Indication: Psychotic disorder
     Dosage: UNK
     Route: 065
  139. PERPHENAZINE [Suspect]
     Active Substance: PERPHENAZINE
     Dosage: 32 MG, UNK
     Route: 065
  140. PERPHENAZINE [Suspect]
     Active Substance: PERPHENAZINE
     Dosage: 1 DF, OD
     Route: 065
  141. PERPHENAZINE [Suspect]
     Active Substance: PERPHENAZINE
     Dosage: 32 MILLIGRAM, OD
     Route: 065
  142. PERPHENAZINE [Suspect]
     Active Substance: PERPHENAZINE
     Dosage: UNK
     Route: 065
  143. PERPHENAZINE [Suspect]
     Active Substance: PERPHENAZINE
     Dosage: UNK
     Route: 065
  144. PERPHENAZINE [Suspect]
     Active Substance: PERPHENAZINE
     Dosage: 32 MILLIGRAM
     Route: 065
  145. PERPHENAZINE [Suspect]
     Active Substance: PERPHENAZINE
     Dosage: 32 MILLIGRAM
     Route: 065
  146. PERPHENAZINE [Suspect]
     Active Substance: PERPHENAZINE
     Dosage: 32 MILLIGRAM
     Route: 065
  147. PERPHENAZINE [Suspect]
     Active Substance: PERPHENAZINE
     Dosage: 32 MILLIGRAM
     Route: 065
  148. PERPHENAZINE [Suspect]
     Active Substance: PERPHENAZINE
     Dosage: 32 MILLIGRAM
     Route: 065
  149. PERPHENAZINE [Suspect]
     Active Substance: PERPHENAZINE
     Dosage: 32 MILLIGRAM, 1 EVERY 1 DAYS
     Route: 065
  150. PERPHENAZINE [Suspect]
     Active Substance: PERPHENAZINE
     Dosage: UNK
     Route: 065
  151. PERPHENAZINE [Suspect]
     Active Substance: PERPHENAZINE
     Dosage: UNK
     Route: 065
  152. PERPHENAZINE [Suspect]
     Active Substance: PERPHENAZINE
     Indication: Schizophrenia
     Dosage: 32 MG, OD
     Route: 065
  153. PERPHENAZINE [Suspect]
     Active Substance: PERPHENAZINE
     Indication: Psychotic disorder
     Dosage: UNK
     Route: 065
  154. PERPHENAZINE [Suspect]
     Active Substance: PERPHENAZINE
     Dosage: UNK
     Route: 065
  155. PERPHENAZINE [Suspect]
     Active Substance: PERPHENAZINE
     Dosage: UNK
     Route: 065
  156. PERPHENAZINE [Suspect]
     Active Substance: PERPHENAZINE
     Dosage: UNK
     Route: 065
  157. PERPHENAZINE [Suspect]
     Active Substance: PERPHENAZINE
     Dosage: 32 MILLIGRAM
     Route: 065
  158. PERPHENAZINE [Suspect]
     Active Substance: PERPHENAZINE
     Dosage: 32 MILLIGRAM
     Route: 065
  159. QUETIAPINE FUMARATE [Suspect]
     Active Substance: QUETIAPINE FUMARATE
     Indication: Schizophrenia
     Dosage: 600 MILLIGRAM (1 EVERY 1 DAYS)
     Route: 065
  160. QUETIAPINE FUMARATE [Suspect]
     Active Substance: QUETIAPINE FUMARATE
     Indication: Schizophrenia
     Dosage: 600 MG, OD
     Route: 065
  161. QUETIAPINE FUMARATE [Suspect]
     Active Substance: QUETIAPINE FUMARATE
     Indication: Psychotic disorder
     Dosage: 600 MILLIGRAM
     Route: 065
  162. QUETIAPINE FUMARATE [Suspect]
     Active Substance: QUETIAPINE FUMARATE
     Dosage: 600 MILLIGRAM 1 EVERY 1 DAYS
     Route: 048
  163. QUETIAPINE FUMARATE [Suspect]
     Active Substance: QUETIAPINE FUMARATE
     Dosage: 600 MILLIGRAM 1 EVERY 1 DAYS
     Route: 048
  164. QUETIAPINE FUMARATE [Suspect]
     Active Substance: QUETIAPINE FUMARATE
     Dosage: UNK
     Route: 065
  165. QUETIAPINE FUMARATE [Suspect]
     Active Substance: QUETIAPINE FUMARATE
     Dosage: 600 MILLIGRAM 1 EVERY 1 DAYS
     Route: 048
  166. QUETIAPINE FUMARATE [Suspect]
     Active Substance: QUETIAPINE FUMARATE
     Dosage: 600 MILLIGRAM 1 EVERY 1 DAYS
     Route: 065
  167. QUETIAPINE FUMARATE [Suspect]
     Active Substance: QUETIAPINE FUMARATE
     Dosage: 600 MILLIGRAM 1 EVERY 1 DAYS
     Route: 065
  168. QUETIAPINE FUMARATE [Suspect]
     Active Substance: QUETIAPINE FUMARATE
     Dosage: 600 MILLIGRAM 1 EVERY 1 DAYS
     Route: 065
  169. QUETIAPINE FUMARATE [Suspect]
     Active Substance: QUETIAPINE FUMARATE
     Indication: Schizophrenia
     Dosage: 600 MG, UNK
     Route: 005
  170. QUETIAPINE FUMARATE [Suspect]
     Active Substance: QUETIAPINE FUMARATE
     Indication: Psychotic disorder
     Dosage: UNK
     Route: 065
  171. QUETIAPINE FUMARATE [Suspect]
     Active Substance: QUETIAPINE FUMARATE
     Dosage: 600 MILLIGRAM, OD
     Route: 065
  172. QUETIAPINE FUMARATE [Suspect]
     Active Substance: QUETIAPINE FUMARATE
     Dosage: 600 MILLIGRAM, 1 EVERY 1 DAYS
     Route: 048
  173. QUETIAPINE FUMARATE [Suspect]
     Active Substance: QUETIAPINE FUMARATE
     Dosage: 600 MILLIGRAM, 1 EVERY 1 DAYS
     Route: 048
  174. QUETIAPINE FUMARATE [Suspect]
     Active Substance: QUETIAPINE FUMARATE
     Dosage: 600 MILLIGRAM, 1 EVERY 1 DAYS
     Route: 048
  175. RISPERIDONE [Suspect]
     Active Substance: RISPERIDONE
     Indication: Schizophrenia
     Dosage: 3 MG, OD
     Route: 065
  176. RISPERIDONE [Suspect]
     Active Substance: RISPERIDONE
     Indication: Psychotic disorder
     Dosage: 4 MG, OD
     Route: 065
  177. RISPERIDONE [Suspect]
     Active Substance: RISPERIDONE
     Dosage: 3 MG, OD
     Route: 065
  178. RISPERIDONE [Suspect]
     Active Substance: RISPERIDONE
     Dosage: 8 MG, UNK
     Route: 065
  179. RISPERIDONE [Suspect]
     Active Substance: RISPERIDONE
     Dosage: 4 MG, UNK
     Route: 065
  180. RISPERIDONE [Suspect]
     Active Substance: RISPERIDONE
     Dosage: 3 MG, UNK
     Route: 065
  181. RISPERIDONE [Suspect]
     Active Substance: RISPERIDONE
     Dosage: 8 MG, OD
     Route: 065
  182. RISPERIDONE [Suspect]
     Active Substance: RISPERIDONE
     Dosage: 4 MILLIGRAM, OD
     Route: 065
  183. RISPERIDONE [Suspect]
     Active Substance: RISPERIDONE
     Dosage: 3 MILLIGRAM, OD
     Route: 065
  184. RISPERIDONE [Suspect]
     Active Substance: RISPERIDONE
     Dosage: 3 MILLIGRAM, OD
     Route: 065
  185. RISPERIDONE [Suspect]
     Active Substance: RISPERIDONE
     Dosage: 4 MG, UNK
     Route: 065
  186. RISPERIDONE [Suspect]
     Active Substance: RISPERIDONE
     Dosage: 3 MG, UNK
     Route: 065
  187. RISPERIDONE [Suspect]
     Active Substance: RISPERIDONE
     Dosage: 3 MG, UNK
     Route: 065
  188. RISPERIDONE [Suspect]
     Active Substance: RISPERIDONE
     Dosage: 3 MG, UNK
     Route: 065
  189. RISPERIDONE [Suspect]
     Active Substance: RISPERIDONE
     Dosage: 8 MILLIGRAM 1 EVERY 1 DAYS
     Route: 065
  190. RISPERIDONE [Suspect]
     Active Substance: RISPERIDONE
     Dosage: 8 MILLIGRAM 1 EVERY 1 DAYS
     Route: 065
  191. THIORIDAZINE [Suspect]
     Active Substance: THIORIDAZINE
     Indication: Schizophrenia
     Dosage: UNK
     Route: 048
  192. THIORIDAZINE [Suspect]
     Active Substance: THIORIDAZINE
     Indication: Psychotic disorder
     Dosage: 250 MILLIGRAM, UNK
     Route: 048
  193. THIORIDAZINE [Suspect]
     Active Substance: THIORIDAZINE
     Dosage: UNK
     Route: 065
  194. THIORIDAZINE [Suspect]
     Active Substance: THIORIDAZINE
     Dosage: UNK
     Route: 065
  195. THIORIDAZINE [Suspect]
     Active Substance: THIORIDAZINE
     Dosage: UNK
     Route: 065
  196. THIORIDAZINE [Suspect]
     Active Substance: THIORIDAZINE
     Dosage: UNK
     Route: 065
  197. THIORIDAZINE [Suspect]
     Active Substance: THIORIDAZINE
     Dosage: UNK
     Route: 048
  198. THIORIDAZINE [Suspect]
     Active Substance: THIORIDAZINE
     Indication: Schizophrenia
     Dosage: UNK
     Route: 065
  199. THIORIDAZINE [Suspect]
     Active Substance: THIORIDAZINE
     Indication: Psychotic disorder
     Dosage: UNK
     Route: 065
  200. LOXAPINE SUCCINATE [Suspect]
     Active Substance: LOXAPINE SUCCINATE
     Indication: Schizophrenia
     Dosage: 200 MG, UNK
     Route: 065
  201. LOXAPINE SUCCINATE [Suspect]
     Active Substance: LOXAPINE SUCCINATE
     Dosage: 75 MG, UNK
     Route: 065
  202. LOXAPINE SUCCINATE [Suspect]
     Active Substance: LOXAPINE SUCCINATE
     Dosage: 50 MG, UNK
     Route: 065
  203. LOXAPINE SUCCINATE [Suspect]
     Active Substance: LOXAPINE SUCCINATE
     Dosage: UNK
     Route: 065
  204. LOXAPINE SUCCINATE [Suspect]
     Active Substance: LOXAPINE SUCCINATE
     Dosage: UNK
     Route: 065
  205. LOXAPINE SUCCINATE [Suspect]
     Active Substance: LOXAPINE SUCCINATE
     Dosage: UNK
     Route: 065
  206. HALOPERIDOL DECANOATE [Suspect]
     Active Substance: HALOPERIDOL DECANOATE
     Indication: Schizophrenia
     Dosage: 5 MILLIGRAM
     Route: 030
  207. LOXAPINE [Suspect]
     Active Substance: LOXAPINE
     Indication: Schizophrenia
     Dosage: 200 MILLIGRAM
     Route: 065
  208. LOXAPINE [Suspect]
     Active Substance: LOXAPINE
     Dosage: 50 MILLIGRAM
     Route: 065
  209. LOXAPINE [Suspect]
     Active Substance: LOXAPINE
     Dosage: 75 MILLIGRAM
     Route: 065
  210. QUETIAPINE [Suspect]
     Active Substance: QUETIAPINE
     Indication: Schizophrenia
     Dosage: 600 MILLIGRAM
     Route: 065
  211. PROZAC [Suspect]
     Active Substance: FLUOXETINE HYDROCHLORIDE
     Indication: Schizophrenia
     Dosage: 80 MG, UNK
     Route: 065
  212. TRIFLUOPERAZINE [Suspect]
     Active Substance: TRIFLUOPERAZINE HYDROCHLORIDE
     Indication: Schizophrenia
     Dosage: 50 MG, UNK
     Route: 065
  213. TRIFLUOPERAZINE [Suspect]
     Active Substance: TRIFLUOPERAZINE HYDROCHLORIDE
     Dosage: UNK
     Route: 065
  214. TRIFLUOPERAZINE [Suspect]
     Active Substance: TRIFLUOPERAZINE HYDROCHLORIDE
     Indication: Schizophrenia
     Dosage: 50 MILLIGRAM, UNK
     Route: 065
  215. TRIFLUOPERAZINE [Suspect]
     Active Substance: TRIFLUOPERAZINE HYDROCHLORIDE
     Dosage: UNK
     Route: 065
  216. TRIFLUOPERAZINE [Suspect]
     Active Substance: TRIFLUOPERAZINE HYDROCHLORIDE
     Dosage: 50 MILLIGRAM
     Route: 065
  217. ZIPRASIDONE [Suspect]
     Active Substance: ZIPRASIDONE
     Indication: Schizophrenia
     Dosage: 100 MG, UNK
     Route: 065
  218. ZIPRASIDONE [Suspect]
     Active Substance: ZIPRASIDONE
     Indication: Schizophrenia
     Dosage: UNK
     Route: 065
  219. ZIPRASIDONE [Suspect]
     Active Substance: ZIPRASIDONE
     Dosage: 100 MILLIGRAM
     Route: 065
  220. CITALOPRAM HYDROBROMIDE [Suspect]
     Active Substance: CITALOPRAM HYDROBROMIDE
     Indication: Schizophrenia
     Dosage: 80 MG, OD
     Route: 065
  221. CITALOPRAM HYDROBROMIDE [Suspect]
     Active Substance: CITALOPRAM HYDROBROMIDE
     Indication: Depression
     Dosage: UNK
     Route: 065
  222. CITALOPRAM HYDROBROMIDE [Suspect]
     Active Substance: CITALOPRAM HYDROBROMIDE
     Dosage: 250 MG, UNK
     Route: 065
  223. CITALOPRAM HYDROBROMIDE [Suspect]
     Active Substance: CITALOPRAM HYDROBROMIDE
     Dosage: 80 MILLIGRAM
     Route: 065
  224. CITALOPRAM HYDROBROMIDE [Suspect]
     Active Substance: CITALOPRAM HYDROBROMIDE
     Dosage: UNK
     Route: 065
  225. CITALOPRAM HYDROBROMIDE [Suspect]
     Active Substance: CITALOPRAM HYDROBROMIDE
     Dosage: UNK
     Route: 065
  226. CITALOPRAM HYDROBROMIDE [Suspect]
     Active Substance: CITALOPRAM HYDROBROMIDE
     Dosage: UNK
     Route: 065
  227. CITALOPRAM HYDROBROMIDE [Suspect]
     Active Substance: CITALOPRAM HYDROBROMIDE
     Dosage: 250 MG, UNK
     Route: 065
  228. LITHIUM [Suspect]
     Active Substance: LITHIUM
     Indication: Affective disorder
     Dosage: 2400 MG, OD
     Route: 065
  229. LITHIUM [Suspect]
     Active Substance: LITHIUM
     Indication: Schizophrenia
     Dosage: 1800 MG, OD
     Route: 065
  230. LITHIUM [Suspect]
     Active Substance: LITHIUM
     Dosage: 1050 MG, OD
     Route: 065
  231. LITHIUM [Suspect]
     Active Substance: LITHIUM
     Dosage: 1 DF, UNK
     Route: 065
  232. LITHIUM [Suspect]
     Active Substance: LITHIUM
     Dosage: 1 DF, OD
     Route: 065
  233. LITHIUM [Suspect]
     Active Substance: LITHIUM
     Dosage: 2400 MILLIGRAM, UNK
     Route: 065
  234. LITHIUM [Suspect]
     Active Substance: LITHIUM
     Dosage: 1050 MILLIGRAM, UNK
     Route: 065
  235. LITHIUM [Suspect]
     Active Substance: LITHIUM
     Dosage: 1800 MILLIGRAM, UNK
     Route: 065
  236. LITHIUM [Suspect]
     Active Substance: LITHIUM
     Dosage: UNK
     Route: 065
  237. LITHIUM [Suspect]
     Active Substance: LITHIUM
     Dosage: UNK
     Route: 065
  238. LITHIUM [Suspect]
     Active Substance: LITHIUM
     Dosage: UNK
     Route: 065
  239. LITHIUM [Suspect]
     Active Substance: LITHIUM
     Dosage: 1800 MILLIGRAM 1 EVERY 1 DAYS
     Route: 065
  240. LITHIUM [Suspect]
     Active Substance: LITHIUM
     Dosage: 2400 MILLIGRAM 1 EVERY 1 DAYS
     Route: 065
  241. LITHIUM [Suspect]
     Active Substance: LITHIUM
     Dosage: 1050 MILLIGRAM 1 EVERY 1 DAYS
     Route: 065
  242. FLUOXETINE HYDROCHLORIDE [Suspect]
     Active Substance: FLUOXETINE HYDROCHLORIDE
     Indication: Schizophrenia
     Dosage: 80 MG, OD
     Route: 065
  243. FLUOXETINE HYDROCHLORIDE [Suspect]
     Active Substance: FLUOXETINE HYDROCHLORIDE
     Indication: Depression
     Dosage: UNK
     Route: 065
  244. FLUOXETINE HYDROCHLORIDE [Suspect]
     Active Substance: FLUOXETINE HYDROCHLORIDE
     Dosage: 80 MILLIGRAM
     Route: 065
  245. FLUOXETINE HYDROCHLORIDE [Suspect]
     Active Substance: FLUOXETINE HYDROCHLORIDE
     Dosage: 80 MILLIGRAM
     Route: 065
  246. CLOMIPRAMINE HYDROCHLORIDE [Suspect]
     Active Substance: CLOMIPRAMINE HYDROCHLORIDE
     Indication: Schizophrenia
     Dosage: 250 MG, UNK
     Route: 065
  247. ZIPRASIDONE HYDROCHLORIDE [Suspect]
     Active Substance: ZIPRASIDONE HYDROCHLORIDE
     Indication: Schizophrenia
     Dosage: UNK
     Route: 065
  248. ZIPRASIDONE HYDROCHLORIDE [Suspect]
     Active Substance: ZIPRASIDONE HYDROCHLORIDE
     Indication: Psychotic disorder
     Dosage: UNK
     Route: 065
  249. ZIPRASIDONE HYDROCHLORIDE [Suspect]
     Active Substance: ZIPRASIDONE HYDROCHLORIDE
     Dosage: UNK
     Route: 065
  250. ZIPRASIDONE HYDROCHLORIDE [Suspect]
     Active Substance: ZIPRASIDONE HYDROCHLORIDE
     Dosage: UNK
     Route: 048
  251. ZIPRASIDONE HYDROCHLORIDE [Suspect]
     Active Substance: ZIPRASIDONE HYDROCHLORIDE
     Dosage: 100 MILLIGRAM
     Route: 065
  252. ZIPRASIDONE HYDROCHLORIDE [Suspect]
     Active Substance: ZIPRASIDONE HYDROCHLORIDE
     Dosage: 100 MILLIGRAM, 1 EVERY 1 DAYS
     Route: 065
  253. ZIPRASIDONE HYDROCHLORIDE [Suspect]
     Active Substance: ZIPRASIDONE HYDROCHLORIDE
     Dosage: 100 MILLIGRAM, 1 EVERY 1 DAYS
     Route: 065
  254. TRIFLUOPERAZINE HYDROCHLORIDE [Suspect]
     Active Substance: TRIFLUOPERAZINE HYDROCHLORIDE
     Indication: Schizophrenia
     Dosage: 50 MG, OD
     Route: 065
  255. TRIFLUOPERAZINE HYDROCHLORIDE [Suspect]
     Active Substance: TRIFLUOPERAZINE HYDROCHLORIDE
     Indication: Psychotic disorder
     Dosage: 50 MILLIGRAM
     Route: 065
  256. TRIFLUOPERAZINE HYDROCHLORIDE [Suspect]
     Active Substance: TRIFLUOPERAZINE HYDROCHLORIDE
     Indication: Schizophrenia
     Dosage: UNK
     Route: 065
  257. TRIFLUOPERAZINE HYDROCHLORIDE [Suspect]
     Active Substance: TRIFLUOPERAZINE HYDROCHLORIDE
     Indication: Psychotic disorder
     Dosage: 5 MG, UNK
     Route: 065
  258. TRIFLUOPERAZINE HYDROCHLORIDE [Suspect]
     Active Substance: TRIFLUOPERAZINE HYDROCHLORIDE
     Dosage: 50 MILLIGRAM, OD
     Route: 065
  259. TRIFLUOPERAZINE HYDROCHLORIDE [Suspect]
     Active Substance: TRIFLUOPERAZINE HYDROCHLORIDE
     Dosage: UNK
     Route: 065
  260. TRIFLUOPERAZINE HYDROCHLORIDE [Suspect]
     Active Substance: TRIFLUOPERAZINE HYDROCHLORIDE
     Dosage: 50 MILLIGRAM, 1 EVERY 1 DAYS
     Route: 065
  261. TRIFLUOPERAZINE HYDROCHLORIDE [Suspect]
     Active Substance: TRIFLUOPERAZINE HYDROCHLORIDE
     Dosage: 5 MG, UNK
     Route: 065
  262. ZIPRASIDONE HYDROCHLORIDE [Suspect]
     Active Substance: ZIPRASIDONE HYDROCHLORIDE
     Indication: Schizophrenia
     Dosage: 100 MG, OD
     Route: 065
  263. ZIPRASIDONE HYDROCHLORIDE [Suspect]
     Active Substance: ZIPRASIDONE HYDROCHLORIDE
     Indication: Psychotic disorder
     Dosage: UNK
     Route: 065
  264. ZIPRASIDONE HYDROCHLORIDE [Suspect]
     Active Substance: ZIPRASIDONE HYDROCHLORIDE
     Dosage: 100 MILLIGRAM
     Route: 065
  265. ZIPRASIDONE HYDROCHLORIDE [Suspect]
     Active Substance: ZIPRASIDONE HYDROCHLORIDE
     Dosage: 100 MILLIGRAM
     Route: 065
  266. ZIPRASIDONE HYDROCHLORIDE [Suspect]
     Active Substance: ZIPRASIDONE HYDROCHLORIDE
     Dosage: 100 MILLIGRAM, 1 EVERY 1 DAYS
     Route: 048
  267. ZIPRASIDONE HYDROCHLORIDE [Suspect]
     Active Substance: ZIPRASIDONE HYDROCHLORIDE
     Dosage: 100 MILLIGRAM, 1 EVERY 1 DAYS
     Route: 048
  268. CITALOPRAM HYDROBROMIDE [Suspect]
     Active Substance: CITALOPRAM HYDROBROMIDE
     Indication: Schizophrenia
     Dosage: 80 MILLIGRAM
     Route: 065
  269. CITALOPRAM HYDROBROMIDE [Suspect]
     Active Substance: CITALOPRAM HYDROBROMIDE
     Dosage: UNK
     Route: 065
  270. CITALOPRAM HYDROBROMIDE [Suspect]
     Active Substance: CITALOPRAM HYDROBROMIDE
     Dosage: 250 MILLIGRAM
     Route: 065
  271. ZIPRASIDONE [Suspect]
     Active Substance: ZIPRASIDONE
     Indication: Schizophrenia
     Dosage: 15 MILLIGRAM
     Route: 065
  272. OLANZAPINE [Suspect]
     Active Substance: OLANZAPINE
     Dosage: 40 MILLIGRAM
     Route: 065
  273. VALPROATE SODIUM [Suspect]
     Active Substance: VALPROATE SODIUM
     Indication: Schizophrenia
     Dosage: 1250 MILLIGRAM
     Route: 065
  274. VALPROATE SODIUM [Suspect]
     Active Substance: VALPROATE SODIUM
     Dosage: 1000 MILLIGRAM
     Route: 065
  275. ZIPRASIDONE MESYLATE [Suspect]
     Active Substance: ZIPRASIDONE MESYLATE
     Indication: Schizophrenia
     Dosage: 100 MILLIGRAM
     Route: 048
  276. ZIPRASIDONE MESYLATE [Suspect]
     Active Substance: ZIPRASIDONE MESYLATE
     Dosage: UNK
     Route: 065
  277. ZELDOX [Suspect]
     Active Substance: ZIPRASIDONE
     Indication: Schizophrenia
     Dosage: 100 MILLIGRAM
     Route: 048
  278. ABILIFY [Concomitant]
     Active Substance: ARIPIPRAZOLE
     Indication: Product used for unknown indication
     Dosage: UNK
     Route: 065
  279. VALPROATE SODIUM [Concomitant]
     Active Substance: VALPROATE SODIUM
     Indication: Schizophrenia
     Dosage: 1000 MG, UNK
     Route: 065
  280. VALPROATE SODIUM [Concomitant]
     Active Substance: VALPROATE SODIUM
     Dosage: 1250 MG, UNK
     Route: 065
  281. AMISULPRIDE [Concomitant]
     Active Substance: AMISULPRIDE
     Indication: Product used for unknown indication
     Dosage: UNK
     Route: 065
  282. CITALOPRAM [Concomitant]
     Active Substance: CITALOPRAM HYDROBROMIDE
     Indication: Product used for unknown indication
     Dosage: UNK
     Route: 065
  283. CLOMIPRAMINE [Concomitant]
     Active Substance: CLOMIPRAMINE
     Indication: Product used for unknown indication
     Dosage: UNK
     Route: 065
  284. GABAPENTIN [Concomitant]
     Active Substance: GABAPENTIN
     Indication: Product used for unknown indication
     Dosage: UNK
     Route: 065
  285. PERPHENAZINE [Concomitant]
     Active Substance: PERPHENAZINE
     Indication: Product used for unknown indication
     Dosage: UNK
     Route: 065
  286. QUETIAPINE [Concomitant]
     Active Substance: QUETIAPINE
     Indication: Product used for unknown indication
     Dosage: UNK
     Route: 065
  287. QUETIAPINE [Concomitant]
     Active Substance: QUETIAPINE
     Dosage: 600 MILLIGRAM, UNK
     Route: 065
  288. SAPHRIS [Concomitant]
     Active Substance: ASENAPINE MALEATE
     Indication: Product used for unknown indication
     Dosage: UNK
     Route: 065
  289. TRIFLUOPERAZINE [Concomitant]
     Active Substance: TRIFLUOPERAZINE HYDROCHLORIDE
     Indication: Product used for unknown indication
     Dosage: UNK
     Route: 065
  290. FLUPENTIXOL [Concomitant]
     Active Substance: FLUPENTIXOL
     Indication: Product used for unknown indication
     Dosage: UNK
     Route: 065
  291. THIORIDAZINE [Concomitant]
     Active Substance: THIORIDAZINE
     Indication: Product used for unknown indication
     Dosage: UNK
     Route: 065
  292. ZIPRASIDONE MESYLATE [Concomitant]
     Active Substance: ZIPRASIDONE MESYLATE
     Indication: Product used for unknown indication
     Dosage: UNK
     Route: 065
  293. VALPROATE SODIUM [Concomitant]
     Active Substance: VALPROATE SODIUM
     Indication: Affective disorder
     Dosage: UNK
     Route: 065
  294. VALPROATE SODIUM [Concomitant]
     Active Substance: VALPROATE SODIUM
     Indication: Schizophrenia
     Dosage: UNK
     Route: 065
  295. VALPROATE SODIUM [Concomitant]
     Active Substance: VALPROATE SODIUM
     Dosage: 1000 MILLIGRAM
     Route: 048
  296. CITALOPRAM [Concomitant]
     Active Substance: CITALOPRAM HYDROBROMIDE
     Indication: Product used for unknown indication
     Dosage: UNK
     Route: 065
  297. CITALOPRAM [Concomitant]
     Active Substance: CITALOPRAM HYDROBROMIDE
     Dosage: 80 MILLIGRAM
     Route: 065
  298. FLUOXETINE [Concomitant]
     Active Substance: FLUOXETINE HYDROCHLORIDE
     Indication: Schizophrenia
     Dosage: UNK
     Route: 065
  299. FLUOXETINE [Concomitant]
     Active Substance: FLUOXETINE HYDROCHLORIDE
     Dosage: 80 MILLIGRAM, UNK
     Route: 065
  300. VALPROATE SODIUM [Concomitant]
     Active Substance: VALPROATE SODIUM
     Indication: Schizophrenia
     Dosage: 1250 MILLIGRAM, UNK
     Route: 065
  301. VALPROATE SODIUM [Concomitant]
     Active Substance: VALPROATE SODIUM
     Dosage: 1000 MILLIGRAM, UNK
     Route: 065
  302. VALPROATE SODIUM [Concomitant]
     Active Substance: VALPROATE SODIUM
     Dosage: UNK
     Route: 065
  303. VALPROATE SODIUM [Concomitant]
     Active Substance: VALPROATE SODIUM
     Dosage: UNK
     Route: 065
  304. LOXAPINE [Concomitant]
     Active Substance: LOXAPINE
     Indication: Product used for unknown indication
     Dosage: UNK
     Route: 065
  305. LOXAPINE SUCCINATE [Concomitant]
     Active Substance: LOXAPINE SUCCINATE
     Indication: Product used for unknown indication
     Dosage: UNK
     Route: 065
  306. CITALOPRAM HYDROBROMIDE [Suspect]
     Active Substance: CITALOPRAM HYDROBROMIDE
     Indication: Schizophrenia
     Dosage: UNK
     Route: 065
  307. CITALOPRAM HYDROBROMIDE [Suspect]
     Active Substance: CITALOPRAM HYDROBROMIDE
     Indication: Depression
     Dosage: 250 MILLIGRAM
     Route: 065
  308. CITALOPRAM HYDROBROMIDE [Suspect]
     Active Substance: CITALOPRAM HYDROBROMIDE
     Dosage: 80 MILLIGRAM
     Route: 065
  309. HALOPERIDOL DECANOATE [Suspect]
     Active Substance: HALOPERIDOL DECANOATE
     Indication: Schizophrenia
     Dosage: 5 MILLIGRAM
     Route: 065
  310. VALPROATE SODIUM [Concomitant]
     Active Substance: VALPROATE SODIUM
     Indication: Product used for unknown indication
     Dosage: 1000 MILLIGRAM
     Route: 065

REACTIONS (24)
  - Akathisia [Unknown]
  - Leukaemia [Unknown]
  - Skin laceration [Unknown]
  - Antipsychotic drug level below therapeutic [Unknown]
  - Schizoaffective disorder [Unknown]
  - Disinhibition [Unknown]
  - Obsessive-compulsive disorder [Unknown]
  - Off label use [Unknown]
  - Toxicity to various agents [Unknown]
  - Product use in unapproved indication [Unknown]
  - Dyslipidaemia [Unknown]
  - Obesity [Unknown]
  - Euphoric mood [Unknown]
  - Irritability [Unknown]
  - Aggression [Unknown]
  - Suicide attempt [Unknown]
  - Leukopenia [Unknown]
  - Increased appetite [Unknown]
  - Hypertension [Unknown]
  - Weight increased [Unknown]
  - Drug ineffective [Unknown]
  - Prescribed overdose [Unknown]
  - Therapeutic product effect variable [Unknown]
  - Therapeutic product effect incomplete [Unknown]
